FAERS Safety Report 22060583 (Version 2)
Quarter: 2023Q1

REPORT INFORMATION
  Report Type: Spontaneous
  Country: CN (occurrence: CN)
  Receive Date: 20230303
  Receipt Date: 20230308
  Transmission Date: 20230417
  Serious: Yes (Hospitalization)
  Sender: FDA-Public Use
  Company Number: CN-PFIZER INC-PV202300039322

PATIENT
  Age: 2 Year
  Sex: Female
  Weight: 11.5 kg

DRUGS (11)
  1. METHOTREXATE SODIUM [Suspect]
     Active Substance: METHOTREXATE SODIUM
     Indication: Acute leukaemia
     Dosage: 2200 MG, 1X/DAY
     Route: 041
     Dates: start: 20230125, end: 20230125
  2. PEGASPARGASE [Suspect]
     Active Substance: PEGASPARGASE
     Indication: Acute leukaemia
     Dosage: 1275 IU, 1X/DAY
     Route: 030
     Dates: start: 20230130, end: 20230130
  3. IFOSFAMIDE [Suspect]
     Active Substance: IFOSFAMIDE
     Indication: Acute leukaemia
     Dosage: 0.42 G, 2X/DAY
     Route: 041
     Dates: start: 20230126, end: 20230128
  4. DAUNORUBICIN HYDROCHLORIDE [Suspect]
     Active Substance: DAUNORUBICIN HYDROCHLORIDE
     Indication: Acute leukaemia
     Dosage: 15 MG, 1X/DAY
     Route: 041
     Dates: start: 20230129, end: 20230129
  5. VINCRISTINE SULFATE [Suspect]
     Active Substance: VINCRISTINE SULFATE
     Indication: Acute leukaemia
     Dosage: 0.79 G, 1X/DAY
     Route: 040
     Dates: start: 20230125, end: 20230125
  6. VINCRISTINE SULFATE [Suspect]
     Active Substance: VINCRISTINE SULFATE
     Dosage: 0.79 G, 1X/DAY
     Route: 040
     Dates: start: 20230130, end: 20230130
  7. SODIUM CHLORIDE [Concomitant]
     Active Substance: SODIUM CHLORIDE
     Indication: Acute leukaemia
     Dosage: 20 ML, 1X/DAY
     Route: 040
     Dates: start: 20230125, end: 20230125
  8. SODIUM CHLORIDE [Concomitant]
     Active Substance: SODIUM CHLORIDE
     Dosage: 215 ML, 1X/DAY
     Route: 041
     Dates: start: 20230125, end: 20230125
  9. SODIUM CHLORIDE [Concomitant]
     Active Substance: SODIUM CHLORIDE
     Dosage: 80 ML, 2X/DAY
     Route: 041
     Dates: start: 20230126, end: 20230128
  10. SODIUM CHLORIDE [Concomitant]
     Active Substance: SODIUM CHLORIDE
     Dosage: 100 ML, 1X/DAY
     Route: 041
     Dates: start: 20230129, end: 20230129
  11. SODIUM CHLORIDE [Concomitant]
     Active Substance: SODIUM CHLORIDE
     Dosage: 20 ML, 1X/DAY
     Route: 040
     Dates: start: 20230130, end: 20230130

REACTIONS (1)
  - Full blood count decreased [Recovering/Resolving]

NARRATIVE: CASE EVENT DATE: 20230202
